APPROVED DRUG PRODUCT: CEPHALEXIN
Active Ingredient: CEPHALEXIN
Strength: EQ 125MG BASE/5ML
Dosage Form/Route: FOR SUSPENSION;ORAL
Application: A062767 | Product #001
Applicant: TEVA PHARMACEUTICALS USA INC
Approved: Jun 16, 1987 | RLD: No | RS: No | Type: DISCN